FAERS Safety Report 8772655 (Version 1)
Quarter: 2012Q4

REPORT INFORMATION
  Report Type: 
  Country: BR (occurrence: BR)
  Receive Date: 20120905
  Receipt Date: 20120905
  Transmission Date: 20130627
  Serious: Yes (Other)
  Sender: FDA-Public Use
  Company Number: PHHY2012BR075630

PATIENT
  Age: 76 Year
  Sex: Male

DRUGS (7)
  1. BUDESONIDE, FORMOTEROL FUMARATE [Suspect]
     Dosage: 1 DF, BID
  2. TIOTROPIUM [Concomitant]
     Dosage: 5 ug, QD
  3. SALBUTAMOL /IPRATROPIUM [Concomitant]
  4. ESOMEPRAZOLE [Concomitant]
     Indication: GASTROOESOPHAGEAL REFLUX DISEASE
  5. ROSUVASTATIN [Concomitant]
     Indication: DYSLIPIDAEMIA
  6. INDACATEROL [Concomitant]
     Dosage: 300 ug, QD
  7. MOMETASONE [Concomitant]
     Dosage: 400 ug, QD

REACTIONS (2)
  - Dyspnoea [Recovering/Resolving]
  - Activities of daily living impaired [None]
